FAERS Safety Report 19213230 (Version 1)
Quarter: 2021Q2

REPORT INFORMATION
  Report Type: Spontaneous
  Country: US (occurrence: US)
  Receive Date: 20210504
  Receipt Date: 20210504
  Transmission Date: 20210717
  Serious: Yes (Death, Hospitalization, Other)
  Sender: FDA-Public Use
  Company Number: US-BAYER-2021-134464

PATIENT
  Age: 82 Year
  Sex: Female

DRUGS (5)
  1. CELLCEPT [Concomitant]
     Active Substance: MYCOPHENOLATE MOFETIL\MYCOPHENOLATE MOFETIL HYDROCHLORIDE
  2. REMODULIN [Suspect]
     Active Substance: TREPROSTINIL
     Indication: PULMONARY ARTERIAL HYPERTENSION
  3. PREDNISONE. [Concomitant]
     Active Substance: PREDNISONE
  4. RIOCIGUAT SPECIALTY PHARMACY PROVIDER [Suspect]
     Active Substance: RIOCIGUAT
  5. AMBRISENTAN [Suspect]
     Active Substance: AMBRISENTAN
     Indication: PULMONARY ARTERIAL HYPERTENSION

REACTIONS (16)
  - Death [Fatal]
  - Hyponatraemia [None]
  - Hypotension [None]
  - Acute kidney injury [None]
  - Pulmonary arterial hypertension [None]
  - Hyperkalaemia [None]
  - Encephalopathy [None]
  - Cellulitis [None]
  - Metabolic acidosis [None]
  - Oedema peripheral [None]
  - Chronic respiratory failure [None]
  - Chronic obstructive pulmonary disease [None]
  - Thrombocytopenia [None]
  - Normocytic anaemia [None]
  - Cardiogenic shock [None]
  - Right ventricular failure [None]

NARRATIVE: CASE EVENT DATE: 202102
